FAERS Safety Report 7381307-5 (Version None)
Quarter: 2011Q1

REPORT INFORMATION
  Report Type: 
  Country: None (occurrence: None)
  Receive Date: 20110329
  Receipt Date: 20110316
  Transmission Date: 20110831
  Serious: Yes (Hospitalization)
  Sender: FDA-Public Use
  Company Number: PHHY2011FR22463

PATIENT
  Sex: Male
  Weight: 112 kg

DRUGS (4)
  1. MYCOPHENOLIC ACID [Suspect]
     Indication: RENAL TRANSPLANT
     Dosage: 1080 MG, UNK
     Dates: start: 20100820
  2. NEORAL [Suspect]
     Indication: RENAL TRANSPLANT
     Dosage: 275 MG, UNK
     Dates: start: 20100820
  3. TRIATEC [Concomitant]
     Dosage: 5 MG, UNK
  4. ACETAMINOPHEN [Concomitant]
     Dosage: 1 G, QD
     Dates: start: 20100819

REACTIONS (4)
  - CHOLELITHIASIS [None]
  - ABDOMINAL PAIN UPPER [None]
  - COLITIS [None]
  - BILIARY COLIC [None]
